FAERS Safety Report 6131681-2 (Version None)
Quarter: 2009Q1

REPORT INFORMATION
  Report Type: 
  Country: None (occurrence: None)
  Receive Date: 20090325
  Receipt Date: 20090129
  Transmission Date: 20090719
  Serious: Yes (Other)
  Sender: FDA-Public Use
  Company Number: US-BRISTOL-MYERS SQUIBB COMPANY-14488191

PATIENT
  Age: 71 Year
  Sex: Male
  Weight: 58 kg

DRUGS (4)
  1. ERBITUX [Suspect]
     Indication: TONSIL CANCER
     Dosage: STARTING DOSE:700MG AND WEEKLY DOSE WAS 435MG;TIMES 3 DOSES
     Route: 042
     Dates: start: 20081230, end: 20081230
  2. RADIATION THERAPY [Suspect]
     Indication: TONSIL CANCER
     Dosage: FREQ:MON-FRI.EXPECTED TO CONTINUE FOR 8 WEEKS.
     Dates: start: 20081201
  3. NORVASC [Concomitant]
  4. TYLENOL [Concomitant]

REACTIONS (6)
  - CONJUNCTIVITIS [None]
  - DEHYDRATION [None]
  - DERMATITIS ACNEIFORM [None]
  - ORAL DISCOMFORT [None]
  - OROPHARYNGEAL DISCOMFORT [None]
  - WEIGHT DECREASED [None]
